FAERS Safety Report 10504250 (Version 2)
Quarter: 2014Q4

REPORT INFORMATION
  Report Type: Spontaneous
  Country: US (occurrence: US)
  Receive Date: 20141008
  Receipt Date: 20141008
  Transmission Date: 20150528
  Serious: No
  Sender: FDA-Public Use
  Company Number: US-BEH-2014042200

PATIENT
  Sex: Female
  Weight: 98 kg

DRUGS (1)
  1. PRIVIGEN [Suspect]
     Active Substance: HUMAN IMMUNOGLOBULIN G
     Indication: DERMATOMYOSITIS
     Dosage: DAILY FOR 5 DAYS EVERY 4 WEEKS; 2-8 HOURS
     Route: 042

REACTIONS (1)
  - Sinusitis [Unknown]
